FAERS Safety Report 8607468-5 (Version None)
Quarter: 2012Q3

REPORT INFORMATION
  Report Type: 
  Country: None (occurrence: None)
  Receive Date: 20120821
  Receipt Date: 20120713
  Transmission Date: 20120928
  Serious: No
  Sender: FDA-Public Use
  Company Number: SE-009507513-1207USA004663

PATIENT

DRUGS (1)
  1. PROPECIA [Suspect]
     Indication: HAIR GROWTH ABNORMAL
     Dosage: 1 MG, UNK
     Route: 048
     Dates: start: 20120501

REACTIONS (1)
  - NO ADVERSE EVENT [None]
